FAERS Safety Report 9010882 (Version 2)
Quarter: 2013Q1

REPORT INFORMATION
  Report Type: Report from Study
  Country: FR (occurrence: FR)
  Receive Date: 20130111
  Receipt Date: 20130313
  Transmission Date: 20140127
  Serious: Yes (Death)
  Sender: FDA-Public Use
  Company Number: PHHY2013FR002594

PATIENT
  Age: 82 Year
  Sex: Female
  Weight: 45 kg

DRUGS (3)
  1. ACLASTA [Suspect]
     Indication: OSTEOPOROTIC FRACTURE
     Dosage: UNK
     Route: 042
     Dates: start: 201105
  2. LEVOTHYROX [Concomitant]
     Dosage: UNK
     Dates: start: 1998
  3. VITAMIN B12 [Concomitant]
     Dosage: UNK
     Dates: start: 2011

REACTIONS (1)
  - Cerebrovascular accident [Fatal]
